FAERS Safety Report 6392002-3 (Version None)
Quarter: 2009Q4

REPORT INFORMATION
  Report Type: 
  Country: None (occurrence: None)
  Receive Date: 20091007
  Receipt Date: 20090928
  Transmission Date: 20100525
  Serious: Yes (Other)
  Sender: FDA-Public Use
  Company Number: D0062738A

PATIENT
  Sex: Female

DRUGS (11)
  1. LAMICTAL [Suspect]
     Dosage: 350MG PER DAY
     Route: 048
  2. LAMOTRIGINE (RATIOPHARM) [Suspect]
     Route: 048
  3. LAMOTRIGINE [Suspect]
     Route: 048
  4. LAMOTRIGINE [Suspect]
     Route: 048
  5. ANTIDEPRESSANT [Suspect]
     Route: 065
  6. ERGENYL [Concomitant]
     Route: 065
  7. LEVOTHYROXINE SODIUM [Concomitant]
     Route: 065
  8. ANTI-RHEUMATICS [Concomitant]
     Route: 065
  9. DICLAC [Concomitant]
     Route: 065
  10. IBUPROFEN [Concomitant]
     Route: 065
  11. ZOLPIDEM [Concomitant]
     Route: 065

REACTIONS (27)
  - AGGRESSION [None]
  - AGITATION [None]
  - ARTERIOSCLEROSIS [None]
  - ARTHRALGIA [None]
  - AUTOIMMUNE THYROIDITIS [None]
  - BACK PAIN [None]
  - BALANCE DISORDER [None]
  - BLOOD HOMOCYSTEINE INCREASED [None]
  - CONVULSION [None]
  - COORDINATION ABNORMAL [None]
  - DISTURBANCE IN ATTENTION [None]
  - DIZZINESS [None]
  - DYSPEPSIA [None]
  - EPILEPSY [None]
  - GENERAL PHYSICAL HEALTH DETERIORATION [None]
  - HEADACHE [None]
  - HYPOTHYROIDISM [None]
  - INSOMNIA [None]
  - LEUKOPENIA [None]
  - METABOLIC DISORDER [None]
  - PAIN [None]
  - PETIT MAL EPILEPSY [None]
  - SLEEP DISORDER [None]
  - SOMNOLENCE [None]
  - TINNITUS [None]
  - TREMOR [None]
  - VISION BLURRED [None]
